FAERS Safety Report 20626666 (Version 1)
Quarter: 2022Q1

REPORT INFORMATION
  Report Type: Spontaneous
  Country: FR (occurrence: FR)
  Receive Date: 20220323
  Receipt Date: 20220323
  Transmission Date: 20220423
  Serious: Yes (Hospitalization)
  Sender: FDA-Public Use
  Company Number: None

PATIENT
  Age: 91 Year
  Sex: Male
  Weight: 76 kg

DRUGS (1)
  1. ARANESP [Suspect]
     Active Substance: DARBEPOETIN ALFA
     Indication: Aplastic anaemia
     Dosage: 500 MUG/1ML
     Route: 058
     Dates: start: 20220205, end: 20220205

REACTIONS (1)
  - Splenic infarction [Recovering/Resolving]

NARRATIVE: CASE EVENT DATE: 20220214
